FAERS Safety Report 16019291 (Version 2)
Quarter: 2019Q1

REPORT INFORMATION
  Report Type: Report from Study
  Country: US (occurrence: US)
  Receive Date: 20190228
  Receipt Date: 20190311
  Transmission Date: 20190418
  Serious: Yes (Hospitalization)
  Sender: FDA-Public Use
  Company Number: US-ACTELION-A-NJ2019-185228

PATIENT
  Age: 60 Year
  Sex: Female

DRUGS (10)
  1. OPSUMIT [Suspect]
     Active Substance: MACITENTAN
     Indication: PULMONARY HYPERTENSION
     Dosage: 10 MG, QD
     Route: 048
  2. PRAVASTATIN. [Concomitant]
     Active Substance: PRAVASTATIN
  3. ADEMPAS [Concomitant]
     Active Substance: RIOCIGUAT
  4. SPIRONOLACTONE. [Concomitant]
     Active Substance: SPIRONOLACTONE
  5. VELETRI [Suspect]
     Active Substance: EPOPROSTENOL
     Dosage: 13 NG/KG, PER MIN
     Route: 042
     Dates: start: 20190206, end: 20190209
  6. VELETRI [Suspect]
     Active Substance: EPOPROSTENOL
     Dosage: 11 NG/KG, PER MIN
     Route: 042
     Dates: start: 20190209
  7. CELLCEPT [Concomitant]
     Active Substance: MYCOPHENOLATE MOFETIL\MYCOPHENOLATE MOFETIL HYDROCHLORIDE
  8. KCL [Concomitant]
     Active Substance: POTASSIUM CHLORIDE
  9. VELETRI [Suspect]
     Active Substance: EPOPROSTENOL
     Indication: PULMONARY HYPERTENSION
     Dosage: 18 NG/KG, PER MIN
     Route: 042
     Dates: start: 20181212
  10. OXYGEN. [Concomitant]
     Active Substance: OXYGEN

REACTIONS (11)
  - Chest pain [Unknown]
  - Abdominal distension [Unknown]
  - Immunosuppression [Unknown]
  - Decreased appetite [Unknown]
  - Pneumonia [Unknown]
  - Headache [Unknown]
  - Pulmonary embolism [Unknown]
  - Dyspnoea [Unknown]
  - Lung consolidation [Unknown]
  - Asthenia [Unknown]
  - Oedema peripheral [Unknown]

NARRATIVE: CASE EVENT DATE: 20190206
